FAERS Safety Report 7508755-4 (Version None)
Quarter: 2011Q2

REPORT INFORMATION
  Report Type: 
  Country: None (occurrence: None)
  Receive Date: 20110527
  Receipt Date: 20101223
  Transmission Date: 20111010
  Serious: No
  Sender: FDA-Public Use
  Company Number: A0901430A

PATIENT
  Sex: Male

DRUGS (2)
  1. VENTOLIN [Suspect]
     Indication: ASTHMA
     Route: 055
  2. OMEPRAZOLE [Concomitant]

REACTIONS (2)
  - COUGH [None]
  - OROPHARYNGEAL PAIN [None]
